FAERS Safety Report 11212199 (Version 1)
Quarter: 2015Q2

REPORT INFORMATION
  Report Type: Spontaneous
  Country: US (occurrence: None)
  Receive Date: 20150622
  Receipt Date: 20150622
  Transmission Date: 20150821
  Serious: Yes (Other)
  Sender: FDA-Public Use
  Company Number: None

PATIENT
  Age: 66 Year
  Sex: Female

DRUGS (1)
  1. BOSULIF [Suspect]
     Active Substance: BOSUTINIB MONOHYDRATE
     Route: 048
     Dates: start: 20150304, end: 20150615

REACTIONS (4)
  - Pruritus [None]
  - Fungal infection [None]
  - Lip infection [None]
  - Rash [None]

NARRATIVE: CASE EVENT DATE: 20150401
